FAERS Safety Report 7977202 (Version 16)
Quarter: 2013Q2

REPORT INFORMATION
  Report Type: Spontaneous
  Country: US (occurrence: US)
  Receive Date: 20110607
  Receipt Date: 20130617
  Transmission Date: 20140414
  Serious: Yes (Other)
  Sender: FDA-Public Use
  Company Number: US-ASTRAZENECA-2011SE32253

PATIENT
  Age: 63 Year
  Sex: Female
  Weight: 69.9 kg

DRUGS (64)
  1. NEXIUM [Suspect]
     Indication: GASTROOESOPHAGEAL REFLUX DISEASE
     Route: 048
     Dates: start: 20011209
  2. NEXIUM [Suspect]
     Indication: GASTROOESOPHAGEAL REFLUX DISEASE
     Route: 048
     Dates: start: 20011209
  3. NEXIUM [Suspect]
     Indication: GASTROOESOPHAGEAL REFLUX DISEASE
     Route: 048
     Dates: start: 2001, end: 2003
  4. NEXIUM [Suspect]
     Indication: GASTROOESOPHAGEAL REFLUX DISEASE
     Route: 048
     Dates: start: 2001, end: 2003
  5. NEXIUM [Suspect]
     Indication: GASTROOESOPHAGEAL REFLUX DISEASE
     Route: 048
     Dates: start: 200112, end: 200307
  6. NEXIUM [Suspect]
     Indication: GASTROOESOPHAGEAL REFLUX DISEASE
     Route: 048
     Dates: start: 200112, end: 200307
  7. NEXIUM [Suspect]
     Indication: GASTROOESOPHAGEAL REFLUX DISEASE
     Route: 048
     Dates: start: 20020123
  8. NEXIUM [Suspect]
     Indication: GASTROOESOPHAGEAL REFLUX DISEASE
     Route: 048
     Dates: start: 20020123
  9. NEXIUM [Suspect]
     Indication: GASTROOESOPHAGEAL REFLUX DISEASE
     Route: 048
     Dates: start: 20030408
  10. NEXIUM [Suspect]
     Indication: GASTROOESOPHAGEAL REFLUX DISEASE
     Route: 048
     Dates: start: 20030408
  11. PREVACID [Concomitant]
     Indication: GASTROOESOPHAGEAL REFLUX DISEASE
     Dates: start: 20000508
  12. PREVACID [Concomitant]
     Indication: GASTROOESOPHAGEAL REFLUX DISEASE
     Dates: start: 200307, end: 200608
  13. PROTONIX [Concomitant]
     Indication: GASTROOESOPHAGEAL REFLUX DISEASE
     Dates: start: 200608, end: 200707
  14. PROTONIX [Concomitant]
     Indication: GASTROOESOPHAGEAL REFLUX DISEASE
     Dates: start: 20020108
  15. ZEGERID [Concomitant]
     Indication: GASTROOESOPHAGEAL REFLUX DISEASE
     Dates: start: 200708
  16. ZEGERID [Concomitant]
     Indication: GASTROOESOPHAGEAL REFLUX DISEASE
     Dates: start: 20110606
  17. ZEGERID [Concomitant]
     Indication: GASTROOESOPHAGEAL REFLUX DISEASE
     Dates: start: 20121008
  18. BABY ASPIRIN/ASA [Concomitant]
     Indication: ARTHRALGIA
     Dates: start: 20120510
  19. BABY ASPIRIN/ASA [Concomitant]
     Indication: CARDIOVASCULAR EVENT PROPHYLAXIS
     Dates: start: 20120510
  20. BABY ASPIRIN/ASA [Concomitant]
     Indication: ARTHRALGIA
     Dates: start: 20121008
  21. BABY ASPIRIN/ASA [Concomitant]
     Indication: CARDIOVASCULAR EVENT PROPHYLAXIS
     Dates: start: 20121008
  22. LIPITOR [Concomitant]
     Indication: BLOOD CHOLESTEROL
  23. CRESTOR [Concomitant]
     Indication: BLOOD CHOLESTEROL
     Dates: start: 20110606
  24. CRESTOR [Concomitant]
     Indication: BLOOD CHOLESTEROL
     Dates: start: 20111121
  25. AMILORIDE/HCTZ [Concomitant]
     Indication: CALCIUM METABOLISM DISORDER
     Dates: start: 20110606
  26. AMILORIDE/HCTZ [Concomitant]
     Indication: CALCIUM METABOLISM DISORDER
     Dosage: 5MG/50MG DAILY
     Dates: start: 20121008
  27. TOPROL XL [Concomitant]
     Indication: BLOOD PRESSURE
     Dates: start: 20110606
  28. TOPROL XL [Concomitant]
     Indication: BLOOD PRESSURE
     Dates: start: 20121008
  29. SYNTHROID [Concomitant]
     Indication: HYPERPARATHYROIDISM
     Dates: start: 20110606
  30. SYNTHROID [Concomitant]
     Indication: THYROID DISORDER
     Dates: start: 20110606
  31. SYNTHROID [Concomitant]
     Indication: HYPERPARATHYROIDISM
     Dosage: 175 MCG
     Dates: start: 20111121
  32. SYNTHROID [Concomitant]
     Indication: THYROID DISORDER
     Dosage: 175 MCG
     Dates: start: 20111121
  33. SYNTHROID [Concomitant]
     Indication: HYPERPARATHYROIDISM
     Dosage: 50 MICROGRAMS DAILY
     Dates: start: 20121008
  34. SYNTHROID [Concomitant]
     Indication: THYROID DISORDER
     Dosage: 50 MICROGRAMS DAILY
     Dates: start: 20121008
  35. CLIMARA PATCH [Concomitant]
     Dates: start: 2006
  36. CLIMARA PATCH [Concomitant]
     Dates: start: 20111121
  37. CALCIUM [Concomitant]
     Indication: CALCIUM DEFICIENCY
     Dosage: 600 - 1200 MG
     Dates: start: 20111121
  38. ATROPINE [Concomitant]
     Dates: start: 20070821
  39. DEMEROL [Concomitant]
     Dates: start: 20070821
  40. VERSED [Concomitant]
     Route: 040
     Dates: start: 20070821
  41. VITAMIN D [Concomitant]
     Dates: start: 20111121
  42. AMIODARONE HCL [Concomitant]
     Dates: start: 20111121
  43. AMITIZA [Concomitant]
     Indication: CONSTIPATION
     Dates: start: 20111121
  44. AMITIZA [Concomitant]
     Indication: CONSTIPATION
     Dosage: 24 MICROGRAMS TWICE DAILY AS NEEDED
     Dates: start: 20121008
  45. VALTREX [Concomitant]
     Dates: start: 20111121
  46. BEXTRA [Concomitant]
     Dates: start: 20030408
  47. OCTANOL [Concomitant]
     Dates: start: 20030408
  48. PREMPRO [Concomitant]
  49. CLARITIN [Concomitant]
     Dates: start: 20000507
  50. CIPRO [Concomitant]
     Dates: start: 20000427
  51. ACYCLOVIR [Concomitant]
     Dates: start: 20000719
  52. BONTRIL [Concomitant]
     Dates: start: 20060918
  53. LUNESTA [Concomitant]
     Dates: start: 20110509
  54. ZYRTEC [Concomitant]
     Indication: MULTIPLE ALLERGIES
     Dates: start: 20121008
  55. AMBIEN [Concomitant]
     Indication: INSOMNIA
     Dates: start: 20121008
  56. ALIGN [Concomitant]
     Dates: start: 20121008
  57. ACTONEL [Concomitant]
     Dates: start: 20020807
  58. SULFAMETH/TRIMETHOPRIM [Concomitant]
     Dosage: 800/160  TWICE A DAY
     Route: 048
     Dates: start: 20020807
  59. EFFEXOR [Concomitant]
     Route: 048
     Dates: start: 20020821
  60. CELEBREX [Concomitant]
     Route: 048
     Dates: start: 20021118
  61. TIZANIDINE [Concomitant]
     Dosage: 1 TAB PO Q 6 H
     Route: 048
     Dates: start: 20021118
  62. ALLEGRA [Concomitant]
     Route: 048
     Dates: start: 20020430
  63. CYCLOBENZAPRINE [Concomitant]
     Route: 048
     Dates: start: 20021219
  64. PROPOXYPHENE-APAP [Concomitant]
     Indication: PAIN
     Dosage: 100/650 4 TO 6  H PRN
     Route: 048
     Dates: start: 20030115

REACTIONS (13)
  - Spinal fracture [Unknown]
  - Spinal compression fracture [Unknown]
  - Bone density decreased [Unknown]
  - Osteoporotic fracture [Unknown]
  - Osteoporosis [Unknown]
  - Carpal tunnel syndrome [Unknown]
  - Epicondylitis [Unknown]
  - Cubital tunnel syndrome [Unknown]
  - Ligament sprain [Unknown]
  - Osteopenia [Unknown]
  - Calcium deficiency [Unknown]
  - Hyperparathyroidism [Unknown]
  - Vitamin D deficiency [Unknown]
